FAERS Safety Report 5076277-9 (Version None)
Quarter: 2006Q3

REPORT INFORMATION
  Report Type: 
  Country: None (occurrence: None)
  Receive Date: 20060804
  Receipt Date: 20060726
  Transmission Date: 20061208
  Serious: Yes (Other)
  Sender: FDA-Public Use
  Company Number: 2006-07-1961

PATIENT
  Age: 63 Year
  Sex: Female

DRUGS (1)
  1. ELOCON [Suspect]
     Indication: LICHEN PLANUS
     Dosage: TOP-DERM
     Route: 061

REACTIONS (1)
  - ALVEOLITIS ALLERGIC [None]
